FAERS Safety Report 13911435 (Version 1)
Quarter: 2017Q3

REPORT INFORMATION
  Report Type: Spontaneous
  Country: US (occurrence: US)
  Receive Date: 20170828
  Receipt Date: 20170828
  Transmission Date: 20171127
  Serious: No
  Sender: FDA-Public Use
  Company Number: US-GLAXOSMITHKLINE-US2017GSK130261

PATIENT
  Sex: Female

DRUGS (5)
  1. LEVOXYL [Concomitant]
     Active Substance: LEVOTHYROXINE SODIUM
  2. NASONEX [Concomitant]
     Active Substance: MOMETASONE FUROATE
  3. BREO ELLIPTA [Suspect]
     Active Substance: FLUTICASONE FUROATE\VILANTEROL TRIFENATATE
     Indication: COUGH
     Dosage: 1 PUFF(S), QD
     Dates: start: 20170819
  4. CELEBREX [Concomitant]
     Active Substance: CELECOXIB
  5. LIDOCAINE PATCH [Concomitant]
     Active Substance: LIDOCAINE

REACTIONS (12)
  - Product use in unapproved indication [Unknown]
  - Abdominal pain [Unknown]
  - Respiratory rate increased [Unknown]
  - Hallucination [Not Recovered/Not Resolved]
  - Headache [Not Recovered/Not Resolved]
  - Rash [Not Recovered/Not Resolved]
  - Oropharyngeal pain [Not Recovered/Not Resolved]
  - Asthenia [Not Recovered/Not Resolved]
  - Fatigue [Not Recovered/Not Resolved]
  - Dizziness [Not Recovered/Not Resolved]
  - Dry mouth [Not Recovered/Not Resolved]
  - Rash pruritic [Not Recovered/Not Resolved]
